FAERS Safety Report 9018080 (Version 1)
Quarter: 2013Q1

REPORT INFORMATION
  Report Type: Spontaneous
  Country: GB (occurrence: GB)
  Receive Date: 20130117
  Receipt Date: 20130117
  Transmission Date: 20140127
  Serious: Yes (Disabling, Other)
  Sender: FDA-Public Use
  Company Number: PHHY2013GB002024

PATIENT
  Age: 45 Year
  Sex: Male
  Weight: 82.55 kg

DRUGS (1)
  1. VENLAFAXINE HYDROCHLORIDE [Suspect]
     Indication: DEPRESSION
     Dosage: 75 MG, UNK
     Route: 048
     Dates: start: 200312, end: 200701

REACTIONS (7)
  - Calcinosis [Not Recovered/Not Resolved]
  - Skin ulcer [Not Recovered/Not Resolved]
  - Ischaemia [Not Recovered/Not Resolved]
  - Raynaud^s phenomenon [Not Recovered/Not Resolved]
  - Sclerodactylia [Not Recovered/Not Resolved]
  - Telangiectasia [Not Recovered/Not Resolved]
  - Scleroderma [Not Recovered/Not Resolved]
